FAERS Safety Report 8614759-0 (Version None)
Quarter: 2012Q3

REPORT INFORMATION
  Report Type: 
  Country: None (occurrence: None)
  Receive Date: 20120823
  Receipt Date: 20120817
  Transmission Date: 20120928
  Serious: Yes (Hospitalization)
  Sender: FDA-Public Use
  Company Number: FR-PFIZER INC-2012201675

PATIENT
  Age: 58 Year
  Sex: Male

DRUGS (10)
  1. BACTRIM [Suspect]
     Indication: ANTIFUNGAL PROPHYLAXIS
     Dosage: 1 TABLET, 1X/DAY
     Route: 048
     Dates: start: 20120612, end: 20120705
  2. MALOCIDE [Concomitant]
     Dosage: 1 DF, 1X/DAY
     Dates: start: 20120628
  3. NORVIR [Suspect]
     Indication: HIV INFECTION
     Dosage: 100 MG, 1X/DAY (1 DF)
     Route: 048
     Dates: start: 20120627, end: 20120704
  4. SULFADIAZINE [Suspect]
     Indication: CEREBRAL TOXOPLASMOSIS
     Dosage: 6 G, 1X/DAY
     Route: 048
     Dates: start: 20120618, end: 20120709
  5. COMBIVIR [Suspect]
     Indication: HIV INFECTION
     Dosage: 1 DF, 2X/DAY
     Route: 048
     Dates: start: 20120627, end: 20120704
  6. MALOCIDE [Concomitant]
     Dosage: 75 MG, 1X/DAY (1.5 DF)
     Dates: start: 20120619, end: 20120627
  7. CALCIUM FOLINATE [Concomitant]
     Indication: CEREBRAL TOXOPLASMOSIS
     Dosage: 25 MG, DAILY
     Dates: start: 20120618
  8. FLUCONAZOLE [Suspect]
     Indication: OESOPHAGEAL CANDIDIASIS
     Dosage: 100 MG, 1X/DAY
     Route: 048
     Dates: start: 20120608, end: 20120630
  9. MALOCIDE [Concomitant]
     Indication: CEREBRAL TOXOPLASMOSIS
     Dosage: 2 DF, DAILY
     Dates: start: 20120618, end: 20120618
  10. PREZISTA [Suspect]
     Indication: HIV INFECTION
     Dosage: 400 MG, 1X/DAY
     Route: 048
     Dates: start: 20120627, end: 20120704

REACTIONS (18)
  - MYOCARDITIS [None]
  - RENAL FAILURE [None]
  - EYE HAEMORRHAGE [None]
  - STEVENS-JOHNSON SYNDROME [None]
  - BLOOD SODIUM DECREASED [None]
  - GAMMA-GLUTAMYLTRANSFERASE INCREASED [None]
  - BLOOD LACTATE DEHYDROGENASE INCREASED [None]
  - BLOOD IRON DECREASED [None]
  - ELECTROCARDIOGRAM ST SEGMENT ELEVATION [None]
  - CEREBRAL TOXOPLASMOSIS [None]
  - TACHYCARDIA [None]
  - DRUG RASH WITH EOSINOPHILIA AND SYSTEMIC SYMPTOMS [None]
  - NEPHROTIC SYNDROME [None]
  - TRANSFERRIN DECREASED [None]
  - TRANSFERRIN SATURATION DECREASED [None]
  - ELECTROCARDIOGRAM REPOLARISATION ABNORMALITY [None]
  - CYTOMEGALOVIRUS CHORIORETINITIS [None]
  - RENAL CYST [None]
